FAERS Safety Report 11046123 (Version 2)
Quarter: 2015Q2

REPORT INFORMATION
  Report Type: Spontaneous
  Country: US (occurrence: US)
  Receive Date: 20150418
  Receipt Date: 20150524
  Transmission Date: 20150821
  Serious: No
  Sender: FDA-Public Use
  Company Number: US-JNJFOC-20131015480

PATIENT
  Age: 71 Year
  Sex: Female
  Weight: 65.77 kg

DRUGS (4)
  1. KETOCONAZOLE 2% [Suspect]
     Active Substance: KETOCONAZOLE
     Indication: ALOPECIA
     Dosage: 3 WEEKS AGO
     Route: 062
     Dates: start: 201310
  2. LAMICTAL [Concomitant]
     Active Substance: LAMOTRIGINE
     Indication: BIPOLAR DISORDER
     Route: 048
  3. PHENOL. [Suspect]
     Active Substance: PHENOL
     Indication: ALOPECIA
     Route: 065
     Dates: start: 201310
  4. DEPAKOTE [Concomitant]
     Active Substance: DIVALPROEX SODIUM
     Indication: BIPOLAR DISORDER
     Route: 048

REACTIONS (8)
  - Panic attack [Not Recovered/Not Resolved]
  - Incorrect route of drug administration [Unknown]
  - Drug ineffective [Unknown]
  - Mental impairment [Not Recovered/Not Resolved]
  - Abnormal behaviour [Not Recovered/Not Resolved]
  - Hair texture abnormal [Not Recovered/Not Resolved]
  - Depression [Not Recovered/Not Resolved]
  - Product use issue [Unknown]

NARRATIVE: CASE EVENT DATE: 201310
